FAERS Safety Report 10924872 (Version 2)
Quarter: 2015Q2

REPORT INFORMATION
  Report Type: Spontaneous
  Country: US (occurrence: US)
  Receive Date: 20150318
  Receipt Date: 20150524
  Transmission Date: 20150821
  Serious: No
  Sender: FDA-Public Use
  Company Number: US-JNJFOC-20131000305

PATIENT
  Age: 64 Year
  Sex: Male
  Weight: 122.47 kg

DRUGS (2)
  1. NIZORAL A-D [Suspect]
     Active Substance: KETOCONAZOLE
     Route: 061
  2. NIZORAL A-D [Suspect]
     Active Substance: KETOCONAZOLE
     Indication: RASH MACULAR
     Dosage: 1 TO 2 DAYS
     Route: 061
     Dates: end: 20131010

REACTIONS (3)
  - Rash [Not Recovered/Not Resolved]
  - Product quality issue [Unknown]
  - Product use issue [Unknown]

NARRATIVE: CASE EVENT DATE: 20050101
